FAERS Safety Report 5453940-9 (Version None)
Quarter: 2007Q3

REPORT INFORMATION
  Report Type: 
  Country: None (occurrence: None)
  Receive Date: 20070917
  Receipt Date: 20070702
  Transmission Date: 20080115
  Serious: Yes (Hospitalization)
  Sender: FDA-Public Use
  Company Number: US-ASTRAZENECA-2006UW03286

PATIENT
  Age: 11940 Day
  Sex: Male
  Weight: 79.5 kg

DRUGS (30)
  1. SEROQUEL [Suspect]
     Indication: DEPRESSION
     Route: 048
     Dates: start: 19990101
  2. SEROQUEL [Suspect]
     Indication: BIPOLAR DISORDER
     Route: 048
     Dates: start: 19990101
  3. SEROQUEL [Suspect]
     Indication: SCHIZOPHRENIA
     Route: 048
     Dates: start: 19990101
  4. RISPERDAL [Concomitant]
     Dates: start: 20040101, end: 20040101
  5. EFFEXOR [Concomitant]
     Dates: start: 20030501, end: 20030801
  6. DEPAKOTE [Concomitant]
     Dates: start: 20040101
  7. FLEXERIL [Concomitant]
  8. SKELAXIN [Concomitant]
  9. PROTONIX [Concomitant]
  10. DARVOCET-N 100 [Concomitant]
  11. TRILEPTAL [Concomitant]
     Route: 048
  12. PROZAC [Concomitant]
  13. METHOCARBAMOL [Concomitant]
  14. SALSALATE [Concomitant]
  15. CEPHALEXIN [Concomitant]
     Route: 048
  16. LEVAQUIN [Concomitant]
     Route: 048
  17. INDERAL LA [Concomitant]
     Route: 048
  18. MAXALT [Concomitant]
  19. INDOMETHACIN [Concomitant]
     Route: 048
  20. ZITHROMAX [Concomitant]
     Route: 048
  21. AMOXICILLIN [Concomitant]
     Route: 048
  22. ACETAMINOPHEN AND HYDROCODONE BITARTRATE [Concomitant]
     Route: 048
  23. CARISOPRODOL [Concomitant]
     Route: 048
  24. BETAMETHASONE [Concomitant]
  25. PREDNISOLONE [Concomitant]
  26. HOMATROPINE [Concomitant]
  27. AMBIEN [Concomitant]
     Route: 048
  28. CLONAZEPAM [Concomitant]
     Route: 048
  29. THIOTHIXENE [Concomitant]
     Route: 048
  30. PREDNISONE TAB [Concomitant]
     Route: 048

REACTIONS (3)
  - DIABETES MELLITUS [None]
  - GASTRITIS [None]
  - PANCREATITIS [None]
